FAERS Safety Report 15669117 (Version 1)
Quarter: 2018Q4

REPORT INFORMATION
  Report Type: Spontaneous
  Country: GB (occurrence: GB)
  Receive Date: 20181129
  Receipt Date: 20181129
  Transmission Date: 20190205
  Serious: Yes (Other)
  Sender: FDA-Public Use
  Company Number: GB-ACCORD-093934

PATIENT
  Age: 86 Year
  Sex: Male
  Weight: 74 kg

DRUGS (12)
  1. LEVOTHYROXINE. [Concomitant]
     Active Substance: LEVOTHYROXINE
     Dosage: BEFORE BREAKFAST TO TREAT UNDER...
     Dates: start: 20170518
  2. PARACETAMOL [Concomitant]
     Active Substance: ACETAMINOPHEN
     Dosage: TAKE 1 OR 2 4 TIMES/DAY
     Dates: start: 20170816
  3. DIGOXIN. [Concomitant]
     Active Substance: DIGOXIN
     Indication: CARDIAC DISORDER
     Dosage: TO HELP CONTROL HEART ...
     Dates: start: 20170518
  4. ACCRETE D3 [Concomitant]
     Indication: BONE DISORDER
     Dosage: TO HELP PREVENT BON...
     Dates: start: 20161223
  5. ATORVASTATIN [Concomitant]
     Active Substance: ATORVASTATIN
     Indication: BLOOD CHOLESTEROL INCREASED
     Dates: start: 20170518
  6. OMEPRAZOLE. [Concomitant]
     Active Substance: OMEPRAZOLE
     Indication: DYSPEPSIA
     Dates: start: 20170308
  7. BISOPROLOL [Concomitant]
     Active Substance: BISOPROLOL
     Dates: start: 20170518
  8. RAMIPRIL. [Suspect]
     Active Substance: RAMIPRIL
     Indication: PRODUCT USED FOR UNKNOWN INDICATION
     Dates: start: 2016
  9. ALENDRONATE SODIUM/ALENDRONIC ACID [Concomitant]
     Indication: BONE DISORDER
     Dosage: TO HELP PREVENT BONE ...
     Dates: start: 20170120
  10. FUROSEMIDE. [Concomitant]
     Active Substance: FUROSEMIDE
     Dosage: EACH MORNING.
     Dates: start: 20170804
  11. PREDNISOLONE. [Concomitant]
     Active Substance: PREDNISOLONE
     Dates: start: 20170726
  12. WARFARIN [Concomitant]
     Active Substance: WARFARIN
     Dosage: TAKE AS DIRECTED IN YOUR YELLOW BOOK TO HELP PR...
     Dates: start: 20170915

REACTIONS (2)
  - Circulatory collapse [Recovered/Resolved]
  - Drug hypersensitivity [Unknown]

NARRATIVE: CASE EVENT DATE: 20180111
